FAERS Safety Report 8557850-X (Version None)
Quarter: 2012Q3

REPORT INFORMATION
  Report Type: 
  Country: None (occurrence: None)
  Receive Date: 20120801
  Receipt Date: 20120705
  Transmission Date: 20120928
  Serious: Yes (Death)
  Sender: FDA-Public Use
  Company Number: US-GLAXOSMITHKLINE-A0987789A

PATIENT
  Age: 59 Year
  Sex: Female

DRUGS (10)
  1. GLUCOPHAGE [Concomitant]
  2. CARISOPRODOL [Concomitant]
  3. AMERGE [Concomitant]
  4. VENLAFAXINE [Concomitant]
  5. TYKERB [Suspect]
     Indication: BREAST CANCER
     Dosage: 250MG PER DAY
     Route: 048
     Dates: start: 20110502
  6. KEPPRA [Concomitant]
  7. VALTREX [Concomitant]
  8. GLYBURIDE [Concomitant]
  9. HUMALOG [Concomitant]
  10. LEVEMIR [Concomitant]

REACTIONS (1)
  - DEATH [None]
